FAERS Safety Report 7448346-7 (Version None)
Quarter: 2011Q2

REPORT INFORMATION
  Report Type: 
  Country: None (occurrence: None)
  Receive Date: 20110429
  Receipt Date: 20100507
  Transmission Date: 20111010
  Serious: No
  Sender: FDA-Public Use
  Company Number: US-ASTRAZENECA-2010SE21016

PATIENT
  Age: 58 Year
  Sex: Female
  Weight: 49.9 kg

DRUGS (5)
  1. NEXIUM [Suspect]
     Indication: DYSPEPSIA
     Route: 048
     Dates: start: 20100419, end: 20100424
  2. THYOXINE [Concomitant]
  3. PAXIL [Concomitant]
  4. NEXIUM [Suspect]
     Route: 048
     Dates: start: 20100501, end: 20100501
  5. LOVASTATIN [Concomitant]

REACTIONS (4)
  - DRUG INEFFECTIVE [None]
  - EATING DISORDER [None]
  - DYSPEPSIA [None]
  - PRURITUS [None]
